FAERS Safety Report 5726995-1 (Version None)
Quarter: 2008Q2

REPORT INFORMATION
  Report Type: 
  Country: None (occurrence: None)
  Receive Date: 20080505
  Receipt Date: 20080430
  Transmission Date: 20081010
  Serious: No
  Sender: FDA-Public Use
  Company Number: NZ-ELI_LILLY_AND_COMPANY-NZ200804000332

PATIENT
  Sex: Male

DRUGS (3)
  1. ZYPREXA [Suspect]
     Indication: SCHIZOPHRENIA, PARANOID TYPE
     Dosage: 5 MG, DAILY (1/D)
     Route: 048
     Dates: start: 20080312
  2. ZYPREXA [Suspect]
     Dosage: 7.5 MG, DAILY (1/D)
     Route: 048
  3. QUETIAPINE [Concomitant]
     Indication: PSYCHOTIC DISORDER
     Dosage: 200 MG, 2/D

REACTIONS (3)
  - CYCLIC NEUTROPENIA [None]
  - NEUTROPHIL COUNT DECREASED [None]
  - RESPIRATORY TRACT INFECTION [None]
